FAERS Safety Report 12808713 (Version 1)
Quarter: 2016Q4

REPORT INFORMATION
  Report Type: Spontaneous
  Country: CH (occurrence: CH)
  Receive Date: 20161004
  Receipt Date: 20161004
  Transmission Date: 20170207
  Serious: Yes (Other)
  Sender: FDA-Public Use
  Company Number: CH-009507513-1609CHE014694

PATIENT
  Age: 36 Year

DRUGS (1)
  1. TEMOZOLOMIDE. [Suspect]
     Active Substance: TEMOZOLOMIDE
     Indication: CHEMOTHERAPY
     Dosage: TOTAL DOSE 13000MG,  108 CYCLE (5 DAYS OF TEMOZOLOMIDE ON A 7 DAYS SCHEDULE)

REACTIONS (1)
  - Respiratory tract infection [Unknown]
